FAERS Safety Report 16977813 (Version 1)
Quarter: 2019Q4

REPORT INFORMATION
  Report Type: Spontaneous
  Country: FR (occurrence: FR)
  Receive Date: 20191031
  Receipt Date: 20191031
  Transmission Date: 20200122
  Serious: Yes (Hospitalization)
  Sender: FDA-Public Use
  Company Number: FR-ACCORD-159147

PATIENT
  Age: 56 Year
  Sex: Male
  Weight: 71 kg

DRUGS (15)
  1. METYRAPONE [Suspect]
     Active Substance: METYRAPONE
     Indication: HYPERADRENOCORTICISM
     Dosage: STRENGTH: 250 MG
     Route: 048
     Dates: start: 20190612, end: 20190613
  2. ATORVASTATIN [Concomitant]
     Active Substance: ATORVASTATIN
  3. LAROXYL [Concomitant]
     Active Substance: AMITRIPTYLINE HYDROCHLORIDE
  4. CACIT VITAMIN D3 [Concomitant]
     Active Substance: CALCIUM CARBONATE\CHOLECALCIFEROL
  5. FUROSEMIDE. [Suspect]
     Active Substance: FUROSEMIDE
     Indication: HYPERTENSION
     Route: 048
     Dates: end: 20190701
  6. CYMBALTA [Concomitant]
     Active Substance: DULOXETINE HYDROCHLORIDE
  7. PHOSPHONEUROS [Suspect]
     Active Substance: CALCIUM PHOSPHATE, DIBASIC, ANHYDROUS\MAGNESIUM GLYCEROPHOSPHATE\PHOSPHORIC ACID\SODIUM PHOSPHATE, DIBASIC
     Indication: PRODUCT USED FOR UNKNOWN INDICATION
     Dosage: ORAL SOLUTION IN DROPS
     Route: 048
     Dates: start: 20190419, end: 20190619
  8. COLECALCIFEROL [Concomitant]
     Active Substance: CHOLECALCIFEROL
  9. LEVOTHYROX [Concomitant]
     Active Substance: LEVOTHYROXINE
  10. DIFFU K [Concomitant]
     Active Substance: POTASSIUM CHLORIDE
  11. SOMATULINE [Suspect]
     Active Substance: LANREOTIDE ACETATE
     Indication: HYPERADRENOCORTICISM
     Route: 058
     Dates: start: 20190612, end: 20190612
  12. CYANOCOBALAMIN. [Concomitant]
     Active Substance: CYANOCOBALAMIN
  13. FOLIC ACID. [Concomitant]
     Active Substance: FOLIC ACID
  14. BISOPROLOL [Concomitant]
     Active Substance: BISOPROLOL
  15. TAMSULOSIN/TAMSULOSIN HYDROCHLORIDE [Concomitant]

REACTIONS (4)
  - Vomiting [Recovered/Resolved]
  - Nausea [Recovered/Resolved]
  - Glucocorticoid deficiency [Not Recovered/Not Resolved]
  - Diarrhoea [Recovered/Resolved]

NARRATIVE: CASE EVENT DATE: 20190612
